FAERS Safety Report 20223131 (Version 2)
Quarter: 2022Q1

REPORT INFORMATION
  Report Type: Spontaneous
  Country: US (occurrence: US)
  Receive Date: 20211223
  Receipt Date: 20220110
  Transmission Date: 20220423
  Serious: No
  Sender: FDA-Public Use
  Company Number: US-ORGANON-O2112USA001594

PATIENT
  Age: 20 Year
  Sex: Female
  Weight: 136 kg

DRUGS (1)
  1. NEXPLANON [Suspect]
     Active Substance: ETONOGESTREL
     Dosage: 1 IMPLANT FOR 3 YEARS
     Route: 059

REACTIONS (3)
  - Device deployment issue [Unknown]
  - Device issue [Unknown]
  - No adverse event [Unknown]
